FAERS Safety Report 8306152-5 (Version None)
Quarter: 2012Q2

REPORT INFORMATION
  Report Type: 
  Country: None (occurrence: None)
  Receive Date: 20120423
  Receipt Date: 20120410
  Transmission Date: 20120825
  Serious: Yes (Hospitalization)
  Sender: FDA-Public Use
  Company Number: AU-MYLANLABS-2012S1007573

PATIENT
  Age: 29 Year
  Sex: Male

DRUGS (8)
  1. VALPROIC ACID [Suspect]
     Route: 048
  2. ACETAMINOPHEN [Suspect]
     Indication: OVERDOSE
     Dosage: DF = 500MG STANDARD-PREPARATION; TOTAL ~50G
     Route: 048
  3. ACETAMINOPHEN [Suspect]
     Route: 048
  4. AMITRIPTYLINE HCL [Suspect]
     Indication: OVERDOSE
     Route: 048
  5. OLANZAPINE [Suspect]
     Indication: OVERDOSE
     Route: 048
  6. OLANZAPINE [Suspect]
     Route: 048
  7. VALPROIC ACID [Suspect]
     Indication: OVERDOSE
     Route: 048
  8. AMITRIPTYLINE HCL [Suspect]
     Route: 048

REACTIONS (7)
  - DRUG LEVEL INCREASED [None]
  - MULTI-ORGAN FAILURE [None]
  - COAGULOPATHY [None]
  - OVERDOSE [None]
  - DRUG EFFECT PROLONGED [None]
  - HAEMORRHAGE [None]
  - ACUTE HEPATIC FAILURE [None]
